FAERS Safety Report 4444497-X (Version None)
Quarter: 2004Q3

REPORT INFORMATION
  Report Type: 
  Country: None (occurrence: None)
  Receive Date: 20040902
  Receipt Date: 20040826
  Transmission Date: 20050211
  Serious: Yes (Other)
  Sender: FDA-Public Use
  Company Number: 002572

PATIENT
  Sex: Female

DRUGS (4)
  1. MEDROXYPROGESTERONE ACETATE [Suspect]
     Dosage: 10.00 MG
     Dates: start: 19940531, end: 19950505
  2. PROVERA [Suspect]
     Dosage: 10.00 MG
     Dates: start: 19940531, end: 19950505
  3. PREMPRO [Suspect]
     Dates: start: 19940531, end: 19950505
  4. MEDROXYPROGESTERONE ACETATE [Suspect]
     Dates: start: 19960723, end: 20010901

REACTIONS (1)
  - BREAST CANCER FEMALE [None]
